FAERS Safety Report 22960030 (Version 2)
Quarter: 2023Q4

REPORT INFORMATION
  Report Type: Spontaneous
  Country: JP (occurrence: JP)
  Receive Date: 20230920
  Receipt Date: 20231128
  Transmission Date: 20240109
  Serious: Yes (Other)
  Sender: FDA-Public Use
  Company Number: JP-002147023-NVSJ2023JP013792

PATIENT
  Age: 60 Year
  Sex: Female

DRUGS (1)
  1. LUTATHERA [Suspect]
     Active Substance: LUTETIUM OXODOTREOTIDE LU-177
     Indication: Hepatic neuroendocrine tumour
     Dosage: UNK
     Route: 042

REACTIONS (5)
  - Cushing^s syndrome [Unknown]
  - Condition aggravated [Unknown]
  - Hypertension [Recovered/Resolved]
  - Diabetes mellitus [Recovering/Resolving]
  - Pigmentation disorder [Recovered/Resolved]
